FAERS Safety Report 25636496 (Version 1)
Quarter: 2025Q3

REPORT INFORMATION
  Report Type: Spontaneous
  Country: US (occurrence: US)
  Receive Date: 20250804
  Receipt Date: 20250804
  Transmission Date: 20251020
  Serious: No
  Sender: AMGEN
  Company Number: US-AMGEN-USASP2025148232

PATIENT
  Age: 72 Year
  Sex: Female

DRUGS (3)
  1. REPATHA [Suspect]
     Active Substance: EVOLOCUMAB
     Indication: Product used for unknown indication
     Route: 065
  2. DUPIXENT [Suspect]
     Active Substance: DUPILUMAB
     Indication: Dermatitis atopic
     Dosage: 600 MILLIGRAM, QD
     Route: 058
     Dates: start: 20190726
  3. DUPIXENT [Suspect]
     Active Substance: DUPILUMAB
     Dosage: 300 MILLIGRAM, Q2WK (STRENGTH: 300 MILLIGRAM PER 2 MILLILITRE)
     Route: 058
     Dates: start: 201908

REACTIONS (6)
  - Pruritus [Not Recovered/Not Resolved]
  - Lip infection [Recovering/Resolving]
  - Cheilitis [Recovering/Resolving]
  - Blood cholesterol decreased [Unknown]
  - Skin abrasion [Recovering/Resolving]
  - Dermatitis atopic [Recovering/Resolving]

NARRATIVE: CASE EVENT DATE: 20200401
